FAERS Safety Report 21440077 (Version 2)
Quarter: 2024Q4

REPORT INFORMATION
  Report Type: Report from Study
  Country: US (occurrence: US)
  Receive Date: 20221011
  Receipt Date: 20241101
  Transmission Date: 20250114
  Serious: Yes (Hospitalization, Other)
  Sender: TAKEDA
  Company Number: US-TAKEDA-US202004385

PATIENT
  Sex: Female

DRUGS (2)
  1. HUMAN IMMUNOGLOBULIN G [Suspect]
     Active Substance: HUMAN IMMUNOGLOBULIN G
     Indication: Immunodeficiency common variable
     Dosage: UNK
     Route: 065
  2. HUMAN IMMUNOGLOBULIN G [Suspect]
     Active Substance: HUMAN IMMUNOGLOBULIN G
     Dosage: UNK UNK, 1/WEEK
     Route: 058

REACTIONS (5)
  - COVID-19 [Recovering/Resolving]
  - Pulmonary embolism [Recovering/Resolving]
  - Insurance issue [Unknown]
  - Fatigue [Unknown]
  - Feeling abnormal [Unknown]
